FAERS Safety Report 6683477-0 (Version None)
Quarter: 2010Q2

REPORT INFORMATION
  Report Type: 
  Country: None (occurrence: None)
  Receive Date: 20100415
  Receipt Date: 20100311
  Transmission Date: 20101027
  Serious: Yes (Other)
  Sender: FDA-Public Use
  Company Number: US-BAXTER-2010BH006124

PATIENT
  Sex: Female

DRUGS (1)
  1. REGLAN [Suspect]
     Indication: GASTRIC DISORDER
     Route: 048

REACTIONS (1)
  - ADVERSE EVENT [None]
